FAERS Safety Report 25468362 (Version 1)
Quarter: 2025Q2

REPORT INFORMATION
  Report Type: Spontaneous
  Country: US (occurrence: None)
  Receive Date: 20250620
  Receipt Date: 20250620
  Transmission Date: 20250716
  Serious: Yes (Hospitalization)
  Sender: FDA-CTU
  Company Number: None

PATIENT
  Age: 77 Year
  Sex: Female
  Weight: 74.84 kg

DRUGS (12)
  1. TACROLIMUS [Suspect]
     Active Substance: TACROLIMUS
     Indication: Renal transplant
     Dosage: FREQUENCY : TWICE A DAY;?
     Route: 048
     Dates: start: 20231205
  2. MYCOPHENOLIC ACID (MYCOPHENOLATE SODIUM) [Suspect]
     Active Substance: MYCOPHENOLATE SODIUM
     Indication: Renal transplant
     Dosage: FREQUENCY : TWICE A DAY;?
     Route: 048
     Dates: start: 20250525
  3. PREDNISONE [Concomitant]
     Active Substance: PREDNISONE
  4. FISH OIL [Concomitant]
     Active Substance: FISH OIL
  5. COENZYME Q10 [Concomitant]
     Active Substance: DIETARY SUPPLEMENT\UBIDECARENONE
  6. ASPIRIN [Concomitant]
     Active Substance: ASPIRIN
  7. FAMOTIDINE [Concomitant]
     Active Substance: FAMOTIDINE
  8. FERROUS SULFATE [Concomitant]
     Active Substance: FERROUS SULFATE
  9. LOVASTATIN [Concomitant]
     Active Substance: LOVASTATIN
  10. VITAMINS [Concomitant]
     Active Substance: VITAMINS
  11. ROPINIROLE [Concomitant]
     Active Substance: ROPINIROLE
  12. VITAMIN D [Concomitant]
     Active Substance: VITAMIN D NOS

REACTIONS (2)
  - Fall [None]
  - Hyponatraemia [None]

NARRATIVE: CASE EVENT DATE: 20250530
